FAERS Safety Report 6082494-1 (Version None)
Quarter: 2009Q1

REPORT INFORMATION
  Report Type: 
  Country: None (occurrence: None)
  Receive Date: 20090202
  Receipt Date: 20070705
  Transmission Date: 20090719
  Serious: No
  Sender: FDA-Public Use
  Company Number: 265269

PATIENT
  Age: 51 Year
  Sex: Female

DRUGS (10)
  1. NOVOLOG [Suspect]
     Indication: DIABETES MELLITUS
     Dosage: SLIDING SCALE, TID WITH MEALS, SUBCUTANEOUS
     Route: 058
     Dates: start: 20070628
  2. LANTUS [Concomitant]
  3. ALBUTEROL /00139501/ (SALBUTAMOL) [Concomitant]
  4. HYDROCHLOROTHIAZIDE [Concomitant]
  5. PREMARIN [Concomitant]
  6. LASIX [Concomitant]
  7. LISINOPRIL [Concomitant]
  8. NEXIUM [Concomitant]
  9. ATENOLOL [Concomitant]
  10. SOMA [Concomitant]

REACTIONS (2)
  - BLOOD GLUCOSE INCREASED [None]
  - HYPERSENSITIVITY [None]
